FAERS Safety Report 8465257-9 (Version None)
Quarter: 2012Q2

REPORT INFORMATION
  Report Type: 
  Country: None (occurrence: None)
  Receive Date: 20120626
  Receipt Date: 20120619
  Transmission Date: 20120825
  Serious: Yes (Other)
  Sender: FDA-Public Use
  Company Number: CA-GENZYME-RENA-1001546

PATIENT
  Age: 84 Year
  Sex: Male

DRUGS (1)
  1. RENAGEL [Suspect]
     Indication: HYPERPHOSPHATAEMIA
     Dosage: 1.6 G, QD
     Route: 048

REACTIONS (4)
  - DYSPHAGIA [None]
  - CARDIAC DISORDER [None]
  - COGNITIVE DISORDER [None]
  - TREATMENT NONCOMPLIANCE [None]
